FAERS Safety Report 17325321 (Version 1)
Quarter: 2020Q1

REPORT INFORMATION
  Report Type: Spontaneous
  Country: US (occurrence: US)
  Receive Date: 20200110
  Receipt Date: 20200110
  Transmission Date: 20200409
  Serious: No
  Sender: FDA-Public Use
  Company Number: None

PATIENT
  Age: 80 Year
  Sex: Female

DRUGS (1)
  1. PROLIA [Suspect]
     Active Substance: DENOSUMAB
     Dosage: ?          OTHER FREQUENCY:UNKNOWN;?
     Route: 058
     Dates: start: 2018

REACTIONS (4)
  - Contusion [None]
  - Therapeutic product effect decreased [None]
  - Muscle spasms [None]
  - Arthralgia [None]

NARRATIVE: CASE EVENT DATE: 20180110
